FAERS Safety Report 7315990-7 (Version None)
Quarter: 2011Q1

REPORT INFORMATION
  Report Type: 
  Country: None (occurrence: None)
  Receive Date: 20110225
  Receipt Date: 20110214
  Transmission Date: 20110831
  Serious: Yes (Hospitalization, Other)
  Sender: FDA-Public Use
  Company Number: PHHY2011MX12848

PATIENT
  Age: 82 Year
  Sex: Female

DRUGS (3)
  1. CO-DIOVAN [Suspect]
     Indication: HYPERTENSION
     Dosage: 80/25 MG (1 TABLET DAILY)
     Route: 048
     Dates: start: 20050310
  2. ASPIRIN [Concomitant]
  3. FUROSEMIDE [Concomitant]

REACTIONS (13)
  - HEADACHE [None]
  - ASTHENIA [None]
  - LIMB DISCOMFORT [None]
  - DIZZINESS [None]
  - DYSPEPSIA [None]
  - PAIN IN EXTREMITY [None]
  - SPEECH DISORDER [None]
  - MYOCARDIAL INFARCTION [None]
  - CONSTIPATION [None]
  - GASTRITIS [None]
  - CRYING [None]
  - HYPOAESTHESIA [None]
  - APATHY [None]
